FAERS Safety Report 9835348 (Version 2)
Quarter: 2014Q1

REPORT INFORMATION
  Report Type: Spontaneous
  Country: ZA (occurrence: ZA)
  Receive Date: 20140122
  Receipt Date: 20140122
  Transmission Date: 20141002
  Serious: Yes (Life-Threatening, Hospitalization)
  Sender: FDA-Public Use
  Company Number: ZA-PFIZER INC-2014011672

PATIENT
  Age: 21 Year
  Sex: Female

DRUGS (4)
  1. HYDROCORTISONE SODIUM SUCCINATE [Suspect]
     Indication: ASTHMA
     Dosage: UNK
     Route: 042
  2. SALBUTAMOL [Concomitant]
     Indication: ASTHMA
     Dosage: UNK
     Route: 041
  3. AMINOPHYLLINE [Concomitant]
     Indication: ASTHMA
     Dosage: UNK
     Route: 041
  4. HEXOPRENALINE [Concomitant]
     Indication: ASTHMA
     Dosage: UNK
     Route: 055

REACTIONS (3)
  - Anaphylactic reaction [Unknown]
  - Respiratory arrest [Recovered/Resolved]
  - Bronchospasm [Recovered/Resolved]
